FAERS Safety Report 6700387-0 (Version None)
Quarter: 2010Q2

REPORT INFORMATION
  Report Type: 
  Country: None (occurrence: None)
  Receive Date: 20100426
  Receipt Date: 20100413
  Transmission Date: 20101027
  Serious: Yes (Hospitalization)
  Sender: FDA-Public Use
  Company Number: 7001485

PATIENT
  Age: 28 Year
  Sex: Male

DRUGS (3)
  1. REBIF [Suspect]
     Indication: MULTIPLE SCLEROSIS
     Dates: start: 20030506
  2. CARBAMAZEPINE [Concomitant]
  3. NAPROXEN [Concomitant]

REACTIONS (4)
  - BRAIN INJURY [None]
  - HEADACHE [None]
  - MEMORY IMPAIRMENT [None]
  - OPEN WOUND [None]
